FAERS Safety Report 7511642-9 (Version None)
Quarter: 2011Q2

REPORT INFORMATION
  Report Type: 
  Country: None (occurrence: None)
  Receive Date: 20110531
  Receipt Date: 20110525
  Transmission Date: 20111010
  Serious: Yes (Other)
  Sender: FDA-Public Use
  Company Number: US-PFIZER INC-2011061759

PATIENT
  Sex: Male

DRUGS (2)
  1. PRILOSEC [Concomitant]
     Indication: DYSPEPSIA
     Dosage: UNK
     Dates: start: 20000101, end: 20100201
  2. CHANTIX [Suspect]
     Indication: SMOKING CESSATION THERAPY
     Dosage: UNK
     Dates: start: 20080701, end: 20081015

REACTIONS (3)
  - BIPOLAR I DISORDER [None]
  - ANGER [None]
  - ABNORMAL BEHAVIOUR [None]
